FAERS Safety Report 25767886 (Version 1)
Quarter: 2025Q3

REPORT INFORMATION
  Report Type: Spontaneous
  Country: US (occurrence: None)
  Receive Date: 20250905
  Receipt Date: 20250905
  Transmission Date: 20251021
  Serious: Yes (Hospitalization)
  Sender: FDA-CTU
  Company Number: None

PATIENT
  Age: 45 Year
  Sex: Female

DRUGS (2)
  1. TYMLOS [Suspect]
     Active Substance: ABALOPARATIDE
     Indication: Osteoporotic fracture
     Dosage: FREQUENCY : DAILY;?
     Route: 058
  2. DEVICE [Suspect]
     Active Substance: DEVICE

REACTIONS (2)
  - Needle issue [None]
  - Incorrect dose administered by device [None]
